FAERS Safety Report 7875531-2 (Version None)
Quarter: 2011Q4

REPORT INFORMATION
  Report Type: 
  Country: None (occurrence: None)
  Receive Date: 20111031
  Receipt Date: 20111027
  Transmission Date: 20120403
  Serious: Yes (Death, Hospitalization, Other)
  Sender: FDA-Public Use
  Company Number: PHHY2011EC95347

PATIENT
  Sex: Male

DRUGS (3)
  1. TEGRETOL-XR [Suspect]
     Dosage: 400 MG, BID
     Route: 048
     Dates: start: 19870101
  2. TEGRETOL [Suspect]
     Dosage: 200 MG, BID
     Route: 048
     Dates: start: 19850301, end: 19870101
  3. ASPIRIN [Concomitant]

REACTIONS (3)
  - VIITH NERVE PARALYSIS [None]
  - THROMBOSIS [None]
  - MYOCARDIAL INFARCTION [None]
